FAERS Safety Report 15374246 (Version 1)
Quarter: 2018Q3

REPORT INFORMATION
  Report Type: Spontaneous
  Country: TW (occurrence: TW)
  Receive Date: 20180912
  Receipt Date: 20180912
  Transmission Date: 20181010
  Serious: Yes (Death, Other)
  Sender: FDA-Public Use
  Company Number: TW-INCYTE CORPORATION-2018IN008943

PATIENT

DRUGS (2)
  1. PREDNISOLONE. [Suspect]
     Active Substance: PREDNISOLONE
     Indication: PRODUCT USED FOR UNKNOWN INDICATION
     Dosage: 5 MG, QD
     Route: 065
  2. JAKAVI [Suspect]
     Active Substance: RUXOLITINIB
     Indication: PRODUCT USED FOR UNKNOWN INDICATION
     Dosage: 5 MG, BID
     Route: 065
     Dates: start: 20140403, end: 20170918

REACTIONS (11)
  - Fatigue [Unknown]
  - Decreased appetite [Unknown]
  - Cachexia [Fatal]
  - Thrombocytopenia [Unknown]
  - Weight decreased [Unknown]
  - Bacteraemia [Unknown]
  - Acute respiratory failure [Unknown]
  - Anaemia [Unknown]
  - Diarrhoea [Unknown]
  - Infection [Fatal]
  - Abdominal mass [Unknown]

NARRATIVE: CASE EVENT DATE: 201708
